FAERS Safety Report 4747534-8 (Version None)
Quarter: 2005Q3

REPORT INFORMATION
  Report Type: 
  Country: None (occurrence: None)
  Receive Date: 20050816
  Receipt Date: 20050803
  Transmission Date: 20060218
  Serious: Yes (Other)
  Sender: FDA-Public Use
  Company Number: HQWYE596421JUN05

PATIENT
  Age: 38 Year
  Sex: Female

DRUGS (5)
  1. EFFEXOR XR [Suspect]
     Indication: BIPOLAR I DISORDER
     Dosage: 75 MG 1X PER 1 DAY ORAL  4-5 DAYS  SEE IMAGE
     Route: 048
     Dates: start: 20050401, end: 20050101
  2. EFFEXOR XR [Suspect]
     Indication: BIPOLAR I DISORDER
     Dosage: 75 MG 1X PER 1 DAY ORAL  4-5 DAYS  SEE IMAGE
     Route: 048
     Dates: start: 20050401, end: 20050401
  3. EFFEXOR XR [Suspect]
     Indication: BIPOLAR I DISORDER
     Dosage: 75 MG 1X PER 1 DAY ORAL  4-5 DAYS  SEE IMAGE
     Route: 048
     Dates: start: 20050401, end: 20050401
  4. EFFEXOR XR [Suspect]
     Indication: BIPOLAR I DISORDER
     Dosage: 75 MG 1X PER 1 DAY ORAL  4-5 DAYS  SEE IMAGE
     Route: 048
     Dates: start: 20050101
  5. SEROQUEL [Concomitant]

REACTIONS (5)
  - DRUG EFFECT DECREASED [None]
  - FATIGUE [None]
  - NIGHT SWEATS [None]
  - UNEVALUABLE EVENT [None]
  - VOMITING [None]
